FAERS Safety Report 7110824-8 (Version None)
Quarter: 2010Q4

REPORT INFORMATION
  Report Type: 
  Country: None (occurrence: None)
  Receive Date: 20101118
  Receipt Date: 20101110
  Transmission Date: 20110411
  Serious: Yes (Other)
  Sender: FDA-Public Use
  Company Number: GB-PFIZER INC-GB-WYE-G06906110

PATIENT
  Age: 56 Year
  Sex: Male
  Weight: 76 kg

DRUGS (2)
  1. EFFEXOR [Suspect]
     Indication: BIPOLAR DISORDER
     Dosage: 75-225 MG VARIABLE DAILY DOSE
     Route: 048
     Dates: start: 20000804, end: 20050811
  2. DEPAKOTE [Concomitant]
     Indication: BIPOLAR DISORDER
     Dosage: 500 MG, 2X/DAY
     Route: 048
     Dates: start: 20050210

REACTIONS (3)
  - CARDIAC MURMUR [None]
  - HYPERTROPHIC CARDIOMYOPATHY [None]
  - SYNCOPE [None]
